FAERS Safety Report 4316879-8 (Version None)
Quarter: 2004Q1

REPORT INFORMATION
  Report Type: 
  Country: None (occurrence: None)
  Receive Date: 20040312
  Receipt Date: 20040312
  Transmission Date: 20041129
  Serious: Yes (Life-Threatening, Hospitalization)
  Sender: FDA-Public Use
  Company Number: None

PATIENT
  Sex: Male
  Weight: 56 kg

DRUGS (4)
  1. IFOSFAMIDE [Suspect]
     Indication: EWING'S SARCOMA
     Dosage: 2880 MG IV A DAY X 5
     Route: 040
     Dates: start: 20040301, end: 20040305
  2. VP16 [Suspect]
     Indication: EWING'S SARCOMA
     Dosage: 160 MG IV Q DAY X 5
     Route: 042
     Dates: start: 20040301, end: 20040305
  3. MESNA [Suspect]
     Indication: EWING'S SARCOMA
     Dosage: 1725 IV MG
     Route: 042
     Dates: start: 20040301, end: 20040305
  4. RT [Suspect]

REACTIONS (3)
  - BACTERAEMIA [None]
  - CATHETER SITE CELLULITIS [None]
  - CATHETER SITE INFECTION [None]
